FAERS Safety Report 19754513 (Version 2)
Quarter: 2021Q4

REPORT INFORMATION
  Report Type: Report from Study
  Country: IT (occurrence: IT)
  Receive Date: 20210827
  Receipt Date: 20211007
  Transmission Date: 20220304
  Serious: Yes (Other)
  Sender: FDA-Public Use
  Company Number: NVSC2021IT185687

PATIENT
  Age: 15 Year
  Sex: Female
  Weight: 35 kg

DRUGS (2)
  1. VOTRIENT [Suspect]
     Active Substance: PAZOPANIB HYDROCHLORIDE
     Indication: Sarcoma metastatic
     Dosage: 400 MG
     Route: 048
     Dates: start: 20210301, end: 20210710
  2. LEVOTHYROXINE [Concomitant]
     Active Substance: LEVOTHYROXINE
     Indication: Hypothyroidism
     Dosage: UNK
     Route: 065
     Dates: start: 20210422, end: 20210710

REACTIONS (2)
  - Abscess neck [Recovered/Resolved with Sequelae]
  - Swelling [Unknown]

NARRATIVE: CASE EVENT DATE: 20210710
